FAERS Safety Report 4673591-3 (Version None)
Quarter: 2005Q2

REPORT INFORMATION
  Report Type: 
  Country: None (occurrence: None)
  Receive Date: 20050523
  Receipt Date: 20040514
  Transmission Date: 20051028
  Serious: Yes (Life-Threatening, Hospitalization)
  Sender: FDA-Public Use
  Company Number: 2003SP000006

PATIENT
  Age: 85 Year
  Sex: Female
  Weight: 52.6173 kg

DRUGS (10)
  1. XOPENEX (LEVALBUTEROL HCL) INHALATION SOLUTION (1.25 MG) [Suspect]
     Indication: CHRONIC OBSTRUCTIVE PULMONARY DISEASE
     Dosage: 1.25 MG; PRN; INHALATION
     Route: 055
     Dates: start: 20030916, end: 20030918
  2. NORMAL SALINE SOLUTION [Concomitant]
  3. BOLUS [Concomitant]
  4. POTASSIUM CHLORIDE [Concomitant]
  5. METHYLPREDNISOLONE [Concomitant]
  6. CEFTRIAXONE [Concomitant]
  7. GUAIFENESIN [Concomitant]
  8. SYNTHROID [Concomitant]
  9. PEPCID [Concomitant]
  10. HEPARIN [Concomitant]

REACTIONS (19)
  - ACUTE MYOCARDIAL INFARCTION [None]
  - ACUTE RESPIRATORY FAILURE [None]
  - BRONCHITIS [None]
  - CARDIAC FAILURE [None]
  - CARDIAC OUTPUT DECREASED [None]
  - CARDIOMEGALY [None]
  - DEHYDRATION [None]
  - HAEMARTHROSIS [None]
  - HAEMATOCRIT DECREASED [None]
  - HAEMOGLOBIN DECREASED [None]
  - HYPERTENSION [None]
  - LUNG DISORDER [None]
  - METABOLIC ACIDOSIS [None]
  - PNEUMONIA [None]
  - PNEUMONITIS [None]
  - RENAL FAILURE [None]
  - STAPHYLOCOCCAL INFECTION [None]
  - VENTRICULAR EXTRASYSTOLES [None]
  - VENTRICULAR TACHYCARDIA [None]
